FAERS Safety Report 19465415 (Version 1)
Quarter: 2021Q2

REPORT INFORMATION
  Report Type: Spontaneous
  Country: US (occurrence: US)
  Receive Date: 20210625
  Receipt Date: 20210625
  Transmission Date: 20210717
  Serious: Yes (Other)
  Sender: FDA-Public Use
  Company Number: US-TEVA-2021-US-1925672

PATIENT
  Sex: Female

DRUGS (1)
  1. OMACETAXINE [Suspect]
     Active Substance: OMACETAXINE
     Dosage: REDUCTION TO 5 DAYS Q28. OMACETAXINE REDUCED TO 3 DAYS Q28 IN APR?2020
     Dates: start: 20191028

REACTIONS (1)
  - Cytopenia [Unknown]
